FAERS Safety Report 8511488-9 (Version None)
Quarter: 2012Q2

REPORT INFORMATION
  Report Type: 
  Country: None (occurrence: None)
  Receive Date: 20120629
  Receipt Date: 20120622
  Transmission Date: 20120825
  Serious: Yes (Life-Threatening)
  Sender: FDA-Public Use
  Company Number: 2012SPO35260

PATIENT
  Age: 35 Year
  Sex: Male

DRUGS (6)
  1. ROCURONIUM BROMIDE [Suspect]
     Indication: ANAESTHESIA
     Dosage: 42 MG, IV
     Route: 042
     Dates: start: 20120526, end: 20120526
  2. ACETAMINOPHEN [Concomitant]
  3. CIPROFLOXACIN HCL [Concomitant]
  4. FENTANYL CITRATE [Suspect]
     Indication: ANAESTHESIA
     Dosage: 0.1 MG, IV
     Route: 042
     Dates: start: 20120526, end: 20120526
  5. METRONIDAZOLE [Concomitant]
  6. PROPOFOL [Suspect]
     Indication: ANAESTHESIA
     Dosage: 140 MG, IV
     Route: 042
     Dates: start: 20120526, end: 20120526

REACTIONS (1)
  - LARYNGEAL OEDEMA [None]
